FAERS Safety Report 20333485 (Version 1)
Quarter: 2022Q1

REPORT INFORMATION
  Report Type: Spontaneous
  Country: US (occurrence: US)
  Receive Date: 20220113
  Receipt Date: 20220113
  Transmission Date: 20220423
  Serious: Yes (Other)
  Sender: FDA-Public Use
  Company Number: US-PFIZER INC-202200016968

PATIENT
  Age: 70 Year
  Sex: Female

DRUGS (2)
  1. XELJANZ XR [Suspect]
     Active Substance: TOFACITINIB CITRATE
     Dosage: UNK
  2. CLOBETASOL [Suspect]
     Active Substance: CLOBETASOL
     Dosage: UNK

REACTIONS (3)
  - Clavicle fracture [Recovering/Resolving]
  - Vomiting [Unknown]
  - Discomfort [Unknown]

NARRATIVE: CASE EVENT DATE: 20211201
